FAERS Safety Report 25359323 (Version 1)
Quarter: 2025Q2

REPORT INFORMATION
  Report Type: Spontaneous
  Country: US (occurrence: None)
  Receive Date: 20250526
  Receipt Date: 20250526
  Transmission Date: 20250717
  Serious: Yes (Other)
  Sender: US WORLDMEDS
  Company Number: US-USWM, LLC-UWM202505-000074

PATIENT
  Sex: Male

DRUGS (1)
  1. EFLORNITHINE [Suspect]
     Active Substance: EFLORNITHINE
     Indication: Neuroblastoma

REACTIONS (1)
  - Neuroblastoma recurrent [Unknown]
